FAERS Safety Report 5045156-5 (Version None)
Quarter: 2006Q2

REPORT INFORMATION
  Report Type: 
  Country: None (occurrence: None)
  Receive Date: 20060601
  Receipt Date: 20060329
  Transmission Date: 20061013
  Serious: No
  Sender: FDA-Public Use
  Company Number: 2006-BP-03523BP

PATIENT
  Sex: Female

DRUGS (17)
  1. SPIRIVA [Suspect]
     Indication: CHRONIC OBSTRUCTIVE PULMONARY DISEASE
     Dosage: 18 MCG(18 MCG), IH
     Route: 055
     Dates: start: 20050401
  2. ADVAIR (SERETIDE /01420901/) [Concomitant]
  3. BONIVA (IBANDRONATE SODIUM) [Concomitant]
  4. PROTONIX [Concomitant]
  5. LORAZEPAM [Concomitant]
  6. RHINACORT AQ (BUDESONIDE) [Concomitant]
  7. ALBUTEROL [Concomitant]
  8. ASPIRIN [Concomitant]
  9. COZAAR [Concomitant]
  10. TOPROL-XL [Concomitant]
  11. LIPITOR [Concomitant]
  12. TRICOR [Concomitant]
  13. ZYRTEC [Concomitant]
  14. EFFEXOR [Concomitant]
  15. LYRICA [Concomitant]
  16. NTG (GLYCERYL TRINITRATE) [Concomitant]
  17. LIDODERM [Concomitant]

REACTIONS (3)
  - DRY MOUTH [None]
  - FUNGAL INFECTION [None]
  - ORAL FUNGAL INFECTION [None]
